FAERS Safety Report 11686229 (Version 1)
Quarter: 2015Q4

REPORT INFORMATION
  Report Type: Spontaneous
  Country: SE (occurrence: SE)
  Receive Date: 20151030
  Receipt Date: 20151030
  Transmission Date: 20160304
  Serious: Yes (Other)
  Sender: FDA-Public Use
  Company Number: SE-PFIZER INC-2015360836

PATIENT
  Age: 37 Year
  Sex: Female

DRUGS (1)
  1. SALAZOPYRIN [Suspect]
     Active Substance: SULFASALAZINE
     Indication: SPINAL OSTEOARTHRITIS
     Dosage: UNK

REACTIONS (2)
  - Sepsis [Unknown]
  - Infection susceptibility increased [Unknown]
